FAERS Safety Report 10264140 (Version 1)
Quarter: 2014Q2

REPORT INFORMATION
  Report Type: Report from Study
  Country: CN (occurrence: CN)
  Receive Date: 20140627
  Receipt Date: 20140627
  Transmission Date: 20141212
  Serious: Yes (Hospitalization)
  Sender: FDA-Public Use
  Company Number: CN-BRISTOL-MYERS SQUIBB COMPANY-21079207

PATIENT
  Age: 63 Year
  Sex: Male

DRUGS (1)
  1. GLUCOPHAGE TABS 500 MG [Suspect]
     Indication: TYPE 2 DIABETES MELLITUS
     Route: 048
     Dates: start: 20130909, end: 20130916

REACTIONS (1)
  - Cerebral infarction [Recovered/Resolved]
